FAERS Safety Report 7422944-9 (Version None)
Quarter: 2011Q2

REPORT INFORMATION
  Report Type: 
  Country: None (occurrence: None)
  Receive Date: 20110419
  Receipt Date: 20110408
  Transmission Date: 20111010
  Serious: Yes (Hospitalization)
  Sender: FDA-Public Use
  Company Number: US-JNJFOC-20110404356

PATIENT
  Sex: Female
  Weight: 64.86 kg

DRUGS (3)
  1. FENTANYL CITRATE [Suspect]
     Indication: NEUROPATHY PERIPHERAL
     Route: 062
  2. DURAGESIC [Suspect]
     Indication: NEUROPATHY PERIPHERAL
     Route: 062
  3. DURAGESIC [Suspect]
     Route: 062

REACTIONS (2)
  - SKIN DISORDER [None]
  - OESOPHAGEAL DISORDER [None]
